FAERS Safety Report 5868921-0 (Version None)
Quarter: 2008Q3

REPORT INFORMATION
  Report Type: 
  Country: None (occurrence: None)
  Receive Date: 20080903
  Receipt Date: 20080822
  Transmission Date: 20090109
  Serious: Yes (Life-Threatening)
  Sender: FDA-Public Use
  Company Number: HR-MERCK-0808HUN00002

PATIENT
  Age: 40 Year
  Sex: Female

DRUGS (7)
  1. PRIMAXIN [Suspect]
     Indication: SEPSIS
     Route: 041
     Dates: start: 20080716, end: 20080723
  2. CONTROLOC [Concomitant]
     Route: 065
  3. FRAGMIN [Concomitant]
     Route: 065
  4. SOLU-MEDROL [Concomitant]
     Route: 065
  5. BISOPROLOL FUMARATE [Concomitant]
     Route: 065
  6. IRUMED [Concomitant]
     Route: 065
  7. FOLACIN [Concomitant]
     Route: 065

REACTIONS (1)
  - CLONUS [None]
